FAERS Safety Report 19883361 (Version 2)
Quarter: 2021Q4

REPORT INFORMATION
  Report Type: Spontaneous
  Country: US (occurrence: US)
  Receive Date: 20210926
  Receipt Date: 20211106
  Transmission Date: 20220303
  Serious: No
  Sender: FDA-Public Use
  Company Number: US-009507513-2109USA000192

PATIENT
  Sex: Female
  Weight: 155.1 kg

DRUGS (1)
  1. PROVENTIL [Suspect]
     Active Substance: ALBUTEROL
     Dosage: INHALE TWO PUFFS BY MOUTH FOURTH TIMES A DAY
     Route: 055
     Dates: start: 20210820

REACTIONS (5)
  - Product delivery mechanism issue [Unknown]
  - Device malfunction [Unknown]
  - Intentional product misuse [Unknown]
  - Poor quality device used [Unknown]
  - No adverse event [Unknown]

NARRATIVE: CASE EVENT DATE: 20210101
